FAERS Safety Report 21883147 (Version 1)
Quarter: 2023Q1

REPORT INFORMATION
  Report Type: Spontaneous
  Country: GB (occurrence: GB)
  Receive Date: 20230119
  Receipt Date: 20230119
  Transmission Date: 20230418
  Serious: Yes (Life-Threatening, Hospitalization, Disabling)
  Sender: FDA-Public Use
  Company Number: None

PATIENT
  Age: 38 Year
  Sex: Male
  Weight: 88 kg

DRUGS (2)
  1. SERTRALINE [Suspect]
     Active Substance: SERTRALINE HYDROCHLORIDE
     Indication: Stress at work
     Dosage: 4 YEAR SEVERE WITHDRAWAL TAPER
     Dates: start: 20170916, end: 20220914
  2. PREGABALIN [Concomitant]
     Active Substance: PREGABALIN
     Indication: Adverse drug reaction
     Dates: start: 20180902, end: 20190716

REACTIONS (12)
  - Akathisia [Recovered/Resolved with Sequelae]
  - Fatigue [Recovered/Resolved with Sequelae]
  - Insomnia [Unknown]
  - Poor quality sleep [Unknown]
  - Vomiting [Unknown]
  - Weight increased [Unknown]
  - Withdrawal syndrome [Unknown]
  - Atrial fibrillation [Unknown]
  - Ventricular extrasystoles [Unknown]
  - Influenza [Unknown]
  - Tinnitus [Unknown]
  - Temperature regulation disorder [Unknown]

NARRATIVE: CASE EVENT DATE: 20180916
